FAERS Safety Report 18080911 (Version 1)
Quarter: 2020Q3

REPORT INFORMATION
  Report Type: Report from Study
  Country: UG (occurrence: UG)
  Receive Date: 20200728
  Receipt Date: 20200728
  Transmission Date: 20201103
  Serious: Yes (Death)
  Sender: FDA-Public Use
  Company Number: UG-GILEAD-2020-0485722

PATIENT
  Age: 22 Year
  Sex: Female

DRUGS (4)
  1. BLINDED EMTRICITABINE;TENOFOVIR DISOPROXIL FUMARATE [Suspect]
     Active Substance: EMTRICITABINE\TENOFOVIR DISOPROXIL FUMARATE
     Indication: PROPHYLAXIS AGAINST HIV INFECTION
     Dosage: 200/300 MG, QD
     Route: 048
     Dates: start: 20191203, end: 20200326
  2. PLACEBO [Suspect]
     Active Substance: UNSPECIFIED INGREDIENT
     Indication: PROPHYLAXIS AGAINST HIV INFECTION
     Dosage: 200/300 MG, QD
     Route: 048
     Dates: start: 20191203, end: 20200326
  3. BLINDED CABOTEGRAVIR [Suspect]
     Active Substance: CABOTEGRAVIR
     Indication: PROPHYLAXIS AGAINST HIV INFECTION
     Dosage: 200/300 MG, QD
     Route: 048
     Dates: start: 20191203, end: 20200326
  4. ETONOGESTREL [Concomitant]
     Active Substance: ETONOGESTREL

REACTIONS (1)
  - Headache [Fatal]

NARRATIVE: CASE EVENT DATE: 20200617
